FAERS Safety Report 4577839-5 (Version None)
Quarter: 2005Q1

REPORT INFORMATION
  Report Type: 
  Country: None (occurrence: None)
  Receive Date: 20050209
  Receipt Date: 20050124
  Transmission Date: 20050727
  Serious: Yes (Life-Threatening, Other)
  Sender: FDA-Public Use
  Company Number: 2004-DE-05739DE

PATIENT
  Sex: Male

DRUGS (3)
  1. AGGRENOX [Suspect]
     Indication: CEREBRAL ISCHAEMIA
     Dosage: STRENGTH: DIPYRIDAMOLE 200 MG, ACETYLSALICYLIC ACID 25 MG (SEE TEXT)
  2. AGGRENOX [Suspect]
     Indication: PROPHYLAXIS
     Dosage: STRENGTH: DIPYRIDAMOLE 200 MG, ACETYLSALICYLIC ACID 25 MG (SEE TEXT)
  3. NEUROPROTECTIVUM [Concomitant]

REACTIONS (2)
  - CEREBRAL HAEMORRHAGE [None]
  - CEREBROVASCULAR DISORDER [None]
